FAERS Safety Report 20539226 (Version 1)
Quarter: 2022Q1

REPORT INFORMATION
  Report Type: Spontaneous
  Country: US (occurrence: None)
  Receive Date: 20220302
  Receipt Date: 20220302
  Transmission Date: 20220423
  Serious: No
  Sender: FDA-Public Use
  Company Number: 2022A070816

PATIENT
  Age: 29619 Day

DRUGS (1)
  1. PULMICORT FLEXHALER [Suspect]
     Active Substance: BUDESONIDE
     Dosage: 90.0UG UNKNOWN
     Route: 055

REACTIONS (3)
  - Speech disorder [Unknown]
  - Device breakage [Unknown]
  - Device use issue [Unknown]

NARRATIVE: CASE EVENT DATE: 20220207
